FAERS Safety Report 19974276 (Version 1)
Quarter: 2021Q4

REPORT INFORMATION
  Report Type: Spontaneous
  Country: US (occurrence: US)
  Receive Date: 20211020
  Receipt Date: 20211020
  Transmission Date: 20220303
  Serious: Yes (Other)
  Sender: FDA-Public Use
  Company Number: US-PFIZER INC-202101360388

PATIENT
  Age: 74 Year
  Sex: Female
  Weight: 58.97 kg

DRUGS (5)
  1. LYRICA [Suspect]
     Active Substance: PREGABALIN
     Indication: Parkinsonism
     Dosage: UNK
     Dates: start: 2021, end: 2021
  2. LYRICA [Suspect]
     Active Substance: PREGABALIN
     Indication: Arthralgia
  3. LYRICA [Suspect]
     Active Substance: PREGABALIN
     Indication: Pain in extremity
  4. XOPENEX [Concomitant]
     Active Substance: LEVALBUTEROL HYDROCHLORIDE
     Indication: Bronchiectasis
     Dosage: UNK, 3X/DAY
     Dates: start: 2006
  5. IPRATROPIUM [Concomitant]
     Active Substance: IPRATROPIUM
     Indication: Bronchiectasis
     Dosage: UNK, 3X/DAY
     Dates: start: 2006

REACTIONS (3)
  - Pulmonary congestion [Recovered/Resolved]
  - Secretion discharge [Recovered/Resolved]
  - Cough [Recovered/Resolved]

NARRATIVE: CASE EVENT DATE: 20210101
